FAERS Safety Report 8981747 (Version 1)
Quarter: 2012Q4

REPORT INFORMATION
  Report Type: 
  Country: TW (occurrence: TW)
  Receive Date: 20121223
  Receipt Date: 20121223
  Transmission Date: 20130627
  Serious: Yes (Hospitalization, Other)
  Sender: FDA-Public Use
  Company Number: PHHY2012TW118236

PATIENT
  Age: 64 Year
  Sex: Male
  Weight: 65 kg

DRUGS (7)
  1. ZOMETA [Suspect]
     Dosage: UNK UKN, UNK
     Dates: start: 20090710, end: 20110904
  2. REVLIMID [Suspect]
     Indication: MULTIPLE MYELOMA
     Dosage: 25 mg, UNK
     Route: 048
     Dates: start: 20121002, end: 20121022
  3. ENTECAVIR [Concomitant]
     Indication: HEPATITIS B
     Dosage: 0.5 mg, per day
     Dates: start: 20120804
  4. TRAMADOL/APAP [Concomitant]
     Dosage: 37.5mg/352mg per day
     Dates: start: 20120806, end: 20121102
  5. IODINE SOLUTION [Concomitant]
     Indication: OSTEONECROSIS
     Dosage: 40 ml, UNK
     Dates: start: 20121130
  6. ALINAMIN F [Concomitant]
     Indication: POLYNEUROPATHY
     Dosage: 1 DF, UNK
     Dates: start: 20120522
  7. ETORICOXIB [Concomitant]
     Indication: MULTIPLE MYELOMA
     Dosage: 60 mg, per day
     Dates: start: 20111126

REACTIONS (4)
  - Osteonecrosis of jaw [Recovered/Resolved]
  - Osteomyelitis [Recovered/Resolved]
  - Gingival abscess [Recovered/Resolved]
  - Tooth abscess [Recovered/Resolved]
